FAERS Safety Report 25931634 (Version 2)
Quarter: 2025Q4

REPORT INFORMATION
  Report Type: Spontaneous
  Country: US (occurrence: US)
  Receive Date: 20251016
  Receipt Date: 20251120
  Transmission Date: 20260118
  Serious: Yes (Hospitalization, Other)
  Sender: BRISTOL-MYERS SQUIBB COMPANY
  Company Number: US-BRISTOL-MYERS SQUIBB COMPANY-2025-140803

PATIENT
  Age: 78 Year
  Sex: Male

DRUGS (1)
  1. REVLIMID [Suspect]
     Active Substance: LENALIDOMIDE
     Indication: 5q minus syndrome
     Dosage: 3 DAYS A WEEK/TAKE 1 CAPSULE BY MOUTH DAILY ON TUESDAY, THURSDAY, AND SATURDAY AFTER DIALYSIS
     Route: 048

REACTIONS (4)
  - Cardiac failure [Unknown]
  - Fall [Unknown]
  - Gait inability [Unknown]
  - Renal disorder [Unknown]
